FAERS Safety Report 5432538-2 (Version None)
Quarter: 2007Q3

REPORT INFORMATION
  Report Type: 
  Country: None (occurrence: None)
  Receive Date: 20070831
  Receipt Date: 20070821
  Transmission Date: 20080115
  Serious: Yes (Hospitalization)
  Sender: FDA-Public Use
  Company Number: PHHO2007AR13911

PATIENT
  Age: 67 Year
  Sex: Male

DRUGS (3)
  1. ATLANSIL [Concomitant]
  2. ALPLAX [Concomitant]
  3. DIOVAN HCT [Suspect]
     Indication: HYPERTENSION
     Dosage: 160 MG, QD
     Route: 048

REACTIONS (2)
  - ARRHYTHMIA [None]
  - CONDITION AGGRAVATED [None]
